FAERS Safety Report 5778476-7 (Version None)
Quarter: 2008Q2

REPORT INFORMATION
  Report Type: 
  Country: None (occurrence: None)
  Receive Date: 20080617
  Receipt Date: 20080603
  Transmission Date: 20081010
  Serious: Yes (Disabling)
  Sender: FDA-Public Use
  Company Number: POMP-1000172

PATIENT
  Age: 53 Year
  Sex: Female
  Weight: 59.5 kg

DRUGS (16)
  1. MYOZYME [Suspect]
     Indication: GLYCOGEN STORAGE DISEASE TYPE II
     Dosage: 20 MG/KG, Q2W, INTRAVENOUS
     Route: 042
     Dates: start: 20060531, end: 20080519
  2. MYOZYME [Suspect]
  3. MYOZYME [Suspect]
  4. MYOZYME [Suspect]
  5. L-ALANINE [Concomitant]
  6. EPHEDRINE SULFATE (EPHEDRINE SULFATE) [Concomitant]
  7. MULTIVITAMIN [Concomitant]
  8. CALCIUM (CALCIUM) [Concomitant]
  9. VITAMIN D [Concomitant]
  10. DIMENHYDRINATE [Concomitant]
  11. PSEUDOEPHEDRINE HCL [Concomitant]
  12. OXYMETAZOLINE (OXYMETAZOLINE) [Concomitant]
  13. ALPRAZOLAM [Concomitant]
  14. IBUPROFEN [Concomitant]
  15. DILAUDID [Concomitant]
  16. ZOFRAN [Concomitant]

REACTIONS (10)
  - ARTHRALGIA [None]
  - ASTHENIA [None]
  - BALANCE DISORDER [None]
  - GAIT DISTURBANCE [None]
  - HEADACHE [None]
  - MUSCULAR WEAKNESS [None]
  - NAUSEA [None]
  - NEURALGIA [None]
  - TINNITUS [None]
  - VERTIGO [None]
